FAERS Safety Report 25365679 (Version 2)
Quarter: 2025Q2

REPORT INFORMATION
  Report Type: Spontaneous
  Country: PT (occurrence: PT)
  Receive Date: 20250527
  Receipt Date: 20250610
  Transmission Date: 20250716
  Serious: Yes (Other)
  Sender: MERCK SHARP & DOHME LLC
  Company Number: PT-009507513-2288338

PATIENT
  Sex: Female

DRUGS (2)
  1. RALTEGRAVIR [Suspect]
     Active Substance: RALTEGRAVIR
     Indication: HIV infection
     Dates: start: 201402, end: 201509
  2. EMTRICITABINE\TENOFOVIR [Suspect]
     Active Substance: EMTRICITABINE\TENOFOVIR
     Indication: HIV infection

REACTIONS (14)
  - Acute coronary syndrome [Unknown]
  - Hypertension [Unknown]
  - Restlessness [Unknown]
  - Headache [Unknown]
  - Dyslipidaemia [Unknown]
  - Obesity [Unknown]
  - Fall [Unknown]
  - Osteoporosis [Unknown]
  - Lumbar vertebral fracture [Unknown]
  - Hepatitis C [Recovered/Resolved]
  - Hepatitis B [Recovered/Resolved]
  - Treatment noncompliance [Unknown]
  - Cardiac valve disease [Unknown]
  - Exercise lack of [Unknown]

NARRATIVE: CASE EVENT DATE: 20150101
